FAERS Safety Report 6156530-8 (Version None)
Quarter: 2009Q2

REPORT INFORMATION
  Report Type: 
  Country: None (occurrence: None)
  Receive Date: 20090416
  Receipt Date: 20090407
  Transmission Date: 20091009
  Serious: Yes (Death, Hospitalization)
  Sender: FDA-Public Use
  Company Number: FR-TEVA-191116ISR

PATIENT
  Sex: Female

DRUGS (4)
  1. VINCRISTINE [Suspect]
     Route: 042
     Dates: start: 20090210, end: 20090210
  2. LOMUSTINE [Suspect]
     Route: 048
     Dates: start: 20090203, end: 20090203
  3. PROCARBAZINE HYDROCHLORIDE [Suspect]
     Route: 048
     Dates: start: 20090210, end: 20090212
  4. ONDANSETRON HYDROCHLORIDE [Suspect]
     Route: 048
     Dates: start: 20090203, end: 20090209

REACTIONS (9)
  - ABDOMINAL PAIN [None]
  - DEATH [None]
  - DEPRESSED LEVEL OF CONSCIOUSNESS [None]
  - DIARRHOEA [None]
  - HEPATITIS ACUTE [None]
  - HYPOTENSION [None]
  - RALES [None]
  - RENAL FAILURE [None]
  - THROMBOCYTOPENIA [None]
